FAERS Safety Report 10844159 (Version 2)
Quarter: 2015Q2

REPORT INFORMATION
  Report Type: Spontaneous
  Country: US (occurrence: US)
  Receive Date: 20150220
  Receipt Date: 20150504
  Transmission Date: 20150821
  Serious: Yes (Other)
  Sender: FDA-Public Use
  Company Number: US-PFIZER INC-2015065408

PATIENT
  Age: 64 Year
  Sex: Female

DRUGS (22)
  1. LYRICA [Suspect]
     Active Substance: PREGABALIN
     Dosage: 200 MG, 2X/DAY
     Dates: start: 2006
  2. ASPIRIN. [Concomitant]
     Active Substance: ASPIRIN
     Dosage: 81 MG, 1X/DAY (1 IN AM)
  3. STOOL SOFTENER [Concomitant]
     Active Substance: DOCUSATE CALCIUM
     Dosage: 100 MG, UNK (1-2 IN PM)
  4. DONPEZIL [Concomitant]
     Indication: SEDATION
  5. CITALOPRAM [Concomitant]
     Active Substance: CITALOPRAM HYDROBROMIDE
     Dosage: 40 MG, 1X/DAY (1 IN PM)
  6. CETRIZINE [Concomitant]
     Active Substance: CETIRIZINE HYDROCHLORIDE
     Dosage: 10 MG, 1X/DAY (1 IN PM)
  7. VITAMIN D3 [Concomitant]
     Active Substance: CHOLECALCIFEROL
     Dosage: 1000 IU, 1X/DAY (1 IN AM)
  8. AMLODIPINE [Concomitant]
     Active Substance: AMLODIPINE BESYLATE
     Dosage: 10 MG, 1X/DAY (1 IN AM)
  9. LEVOTHYROXINE [Concomitant]
     Active Substance: LEVOTHYROXINE
     Dosage: 0.075 MG, 1X/DAY IN AM
  10. PRAVASTATIN [Concomitant]
     Active Substance: PRAVASTATIN\PRAVASTATIN SODIUM
     Dosage: 40 MG, 1X/DAY (1 IN AM)
  11. VITAMIN E [Concomitant]
     Active Substance: .ALPHA.-TOCOPHEROL
     Dosage: 400 IU, 1X/DAY (1 IN PM)
  12. DONPEZIL [Concomitant]
     Indication: MEMORY IMPAIRMENT
     Dosage: UNK
  13. SPIRIVA [Concomitant]
     Active Substance: TIOTROPIUM BROMIDE MONOHYDRATE
     Dosage: 18 ?G, 1X/DAY (1X IN AM)
  14. ZINC [Concomitant]
     Active Substance: ZINC\ZINC CHLORIDE
     Dosage: 50 MG, 1X/DAY (1 IN AM)
  15. ADVAIR HFA [Concomitant]
     Active Substance: FLUTICASONE PROPIONATE\SALMETEROL XINAFOATE
     Dosage: UNK
  16. METOPROLOL [Concomitant]
     Active Substance: METOPROLOL
     Dosage: 100 MG, 1X/DAY (1 IN PM)
  17. MONTELUKAST [Concomitant]
     Active Substance: MONTELUKAST SODIUM
     Dosage: 10 MG, 1X/DAY (1 IN PM)
  18. FUROSEMIDE. [Concomitant]
     Active Substance: FUROSEMIDE
     Dosage: 20 MG, AS NEEDED (1-2 IN PM)
  19. EXTRA STRENGTH TYLENOL PM [Concomitant]
     Active Substance: ACETAMINOPHEN\DIPHENHYDRAMINE HYDROCHLORIDE
     Dosage: 500 MG; 2 WHEN NEEDED
  20. LYRICA [Suspect]
     Active Substance: PREGABALIN
     Indication: FIBROMYALGIA
     Dosage: 200 MG, 2X/DAY (100 MG; 2 IN AM/ 2 IN PM)
  21. BREO ELLIPTA [Concomitant]
     Active Substance: FLUTICASONE FUROATE\VILANTEROL TRIFENATATE
     Dosage: UNK, 1X/DAY (FLUTICASONE FUROATE-100MCG/ VILANTEROL TRIFENATATE 25MCG)
     Route: 045
  22. VENTOLINE [Concomitant]
     Active Substance: ALBUTEROL
     Dosage: 90 ?G, AS NEEDED

REACTIONS (4)
  - Chronic obstructive pulmonary disease [Not Recovered/Not Resolved]
  - Feeling abnormal [Recovered/Resolved]
  - Dysgraphia [Unknown]
  - Transient ischaemic attack [Not Recovered/Not Resolved]

NARRATIVE: CASE EVENT DATE: 2009
